FAERS Safety Report 7496878-8 (Version None)
Quarter: 2011Q2

REPORT INFORMATION
  Report Type: 
  Country: None (occurrence: None)
  Receive Date: 20110523
  Receipt Date: 20110518
  Transmission Date: 20111010
  Serious: Yes (Death, Other)
  Sender: FDA-Public Use
  Company Number: US-SHIRE-SPV1-2011-00821

PATIENT
  Sex: Female
  Weight: 63.492 kg

DRUGS (1)
  1. LIALDA [Suspect]
     Indication: COLITIS
     Route: 048

REACTIONS (3)
  - RESPIRATORY FAILURE [None]
  - CEREBROVASCULAR ACCIDENT [None]
  - MYOCARDIAL INFARCTION [None]
